FAERS Safety Report 18493846 (Version 7)
Quarter: 2025Q4

REPORT INFORMATION
  Report Type: Report from Study
  Country: US (occurrence: US)
  Receive Date: 20201111
  Receipt Date: 20251002
  Transmission Date: 20260117
  Serious: Yes (Hospitalization, Other)
  Sender: TAKEDA
  Company Number: US-SHIRE-US202031716

PATIENT
  Sex: Female

DRUGS (5)
  1. HUMAN IMMUNOGLOBULIN G [Suspect]
     Active Substance: HUMAN IMMUNOGLOBULIN G
     Indication: Primary immunodeficiency syndrome
     Dosage: 24 GRAM, Q4WEEKS
  2. HUMAN IMMUNOGLOBULIN G [Suspect]
     Active Substance: HUMAN IMMUNOGLOBULIN G
     Indication: Immunodeficiency common variable
     Dosage: UNK
  3. HUMAN IMMUNOGLOBULIN G [Suspect]
     Active Substance: HUMAN IMMUNOGLOBULIN G
     Dosage: 24 GRAM, MONTHLY
  4. HUMAN IMMUNOGLOBULIN G [Suspect]
     Active Substance: HUMAN IMMUNOGLOBULIN G
     Dosage: 24 GRAM, MONTHLY
  5. HUMAN IMMUNOGLOBULIN G [Suspect]
     Active Substance: HUMAN IMMUNOGLOBULIN G
     Dosage: UNK

REACTIONS (23)
  - Lower respiratory tract infection [Unknown]
  - Non-Hodgkin^s lymphoma [Unknown]
  - Pneumonia fungal [Unknown]
  - Platelet count decreased [Unknown]
  - White blood cell count decreased [Unknown]
  - Neoplasm malignant [Unknown]
  - Optic nerve disorder [Unknown]
  - Eye pain [Unknown]
  - Productive cough [Unknown]
  - Infection [Not Recovered/Not Resolved]
  - Chronic obstructive pulmonary disease [Unknown]
  - Illness [Not Recovered/Not Resolved]
  - Splenomegaly [Unknown]
  - Heart rate decreased [Unknown]
  - Accident [Unknown]
  - Product dose omission issue [Unknown]
  - Sinusitis [Unknown]
  - Asthma [Unknown]
  - Nasal congestion [Unknown]
  - Pyrexia [Unknown]
  - COVID-19 [Recovering/Resolving]
  - Blood cholesterol decreased [Unknown]
  - Intervertebral disc degeneration [Unknown]

NARRATIVE: CASE EVENT DATE: 20220101
